FAERS Safety Report 25718114 (Version 1)
Quarter: 2025Q3

REPORT INFORMATION
  Report Type: Spontaneous
  Country: US (occurrence: US)
  Receive Date: 20250823
  Receipt Date: 20250823
  Transmission Date: 20251021
  Serious: Yes (Other)
  Sender: AMGEN
  Company Number: US-AMGEN-USASP2025162409

PATIENT

DRUGS (1)
  1. INFLIXIMAB [Suspect]
     Active Substance: INFLIXIMAB
     Indication: Pneumonitis
     Route: 065

REACTIONS (5)
  - Colitis [Unknown]
  - Pneumonitis [Recovered/Resolved]
  - Drug effective for unapproved indication [Unknown]
  - Arthritis [Unknown]
  - Off label use [Unknown]
